FAERS Safety Report 10470098 (Version 4)
Quarter: 2015Q3

REPORT INFORMATION
  Report Type: Spontaneous
  Country: US (occurrence: US)
  Receive Date: 20140923
  Receipt Date: 20150820
  Transmission Date: 20151125
  Serious: Yes (Death, Hospitalization, Other)
  Sender: FDA-Public Use
  Company Number: US-009507513-1409USA010739

PATIENT
  Sex: Male
  Weight: 104.31 kg

DRUGS (2)
  1. JANUVIA [Suspect]
     Active Substance: SITAGLIPTIN PHOSPHATE
     Indication: TYPE 2 DIABETES MELLITUS
     Dosage: 100 MG, DAILY
     Route: 048
     Dates: start: 20070801, end: 20080819
  2. BYETTA [Suspect]
     Active Substance: EXENATIDE
     Indication: TYPE 2 DIABETES MELLITUS
     Dosage: UNK
     Dates: start: 2007, end: 20070525

REACTIONS (58)
  - Dehydration [Recovering/Resolving]
  - Diarrhoea [Recovering/Resolving]
  - Biliary neoplasm [Unknown]
  - Subarachnoid haemorrhage [Unknown]
  - Cerebrovascular disorder [Unknown]
  - Prostate cancer [Unknown]
  - Pyrexia [Recovered/Resolved]
  - Dehydration [Unknown]
  - Leukopenia [Unknown]
  - Gastric stenosis [Unknown]
  - Anaemia [Unknown]
  - Cellulitis [Unknown]
  - Pancreatic carcinoma metastatic [Fatal]
  - Metastases to small intestine [Unknown]
  - Gastroenteritis [Recovered/Resolved]
  - Bile duct stent insertion [Unknown]
  - Device difficult to use [Unknown]
  - Rib fracture [Unknown]
  - Intestinal transit time decreased [Unknown]
  - Oedema peripheral [Unknown]
  - Asthenia [Unknown]
  - Ascites [Recovered/Resolved]
  - Explorative laparotomy [Unknown]
  - Hypokalaemia [Unknown]
  - Haemorrhage intracranial [Unknown]
  - Diabetic retinopathy [Unknown]
  - Impaired gastric emptying [Unknown]
  - Central nervous system lesion [Unknown]
  - Cholecystectomy [Unknown]
  - Cellulitis [Recovering/Resolving]
  - Metastases to diaphragm [Unknown]
  - Bile duct stent insertion [Unknown]
  - Duodenitis [Unknown]
  - Oropharyngeal candidiasis [Unknown]
  - Metastases to liver [Unknown]
  - Diarrhoea [Recovering/Resolving]
  - Arteriosclerosis coronary artery [Unknown]
  - Immunosuppression [Unknown]
  - Actinic keratosis [Unknown]
  - Arachnoid cyst [Unknown]
  - Cataract [Unknown]
  - Haematochezia [Unknown]
  - Odynophagia [Unknown]
  - Hypopnoea [Unknown]
  - Ileus [Recovering/Resolving]
  - Anaemia [Unknown]
  - Chronic kidney disease [Not Recovered/Not Resolved]
  - Hypomagnesaemia [Unknown]
  - Urinary tract disorder [Unknown]
  - Fall [Unknown]
  - Lactose intolerance [Unknown]
  - Gastrointestinal oedema [Unknown]
  - Urinary tract infection [Unknown]
  - Headache [Recovered/Resolved]
  - Brachytherapy to prostate [Unknown]
  - Osteoarthritis [Unknown]
  - Gastrooesophageal reflux disease [Unknown]
  - Back pain [Unknown]

NARRATIVE: CASE EVENT DATE: 201304
